FAERS Safety Report 19819975 (Version 4)
Quarter: 2022Q3

REPORT INFORMATION
  Report Type: Report from Study
  Country: US (occurrence: US)
  Receive Date: 20210913
  Receipt Date: 20220707
  Transmission Date: 20221026
  Serious: Yes (Other)
  Sender: FDA-Public Use
  Company Number: US-NOVARTISTESTPH-NVSC2021US206126

PATIENT
  Sex: Female

DRUGS (3)
  1. ENTRESTO [Suspect]
     Active Substance: SACUBITRIL\VALSARTAN
     Indication: Product used for unknown indication
     Dosage: 50 MG (24/26 MG)
     Route: 065
  2. ENTRESTO [Suspect]
     Active Substance: SACUBITRIL\VALSARTAN
     Dosage: 100 MG, BID (49/51) INCREASED DOSE AFTER APPROX 6
     Route: 048
  3. ENTRESTO [Suspect]
     Active Substance: SACUBITRIL\VALSARTAN
     Dosage: 200 MG, BID (97/103)
     Route: 065
     Dates: start: 20220214

REACTIONS (8)
  - Fall [Recovered/Resolved]
  - Weight decreased [Recovering/Resolving]
  - Spondylitis [Unknown]
  - Arthritis [Not Recovered/Not Resolved]
  - Discomfort [Unknown]
  - Rib fracture [Recovered/Resolved]
  - Lower limb fracture [Recovered/Resolved]
  - Pain [Recovered/Resolved]
